FAERS Safety Report 10448030 (Version 1)
Quarter: 2014Q3

REPORT INFORMATION
  Report Type: Spontaneous
  Country: CH (occurrence: CH)
  Receive Date: 20140911
  Receipt Date: 20140911
  Transmission Date: 20150326
  Serious: Yes (Hospitalization)
  Sender: FDA-Public Use
  Company Number: CH-BAYER-2014-128973

PATIENT
  Age: 87 Year
  Sex: Male

DRUGS (8)
  1. PANTOZOL [Concomitant]
     Active Substance: PANTOPRAZOLE SODIUM
  2. IMOVANE [Concomitant]
     Active Substance: ZOPICLONE
  3. LYRICA [Concomitant]
     Active Substance: PREGABALIN
  4. REMERON [Concomitant]
     Active Substance: MIRTAZAPINE
  5. MADOPAR [Concomitant]
     Active Substance: BENSERAZIDE HYDROCHLORIDE\LEVODOPA
  6. PASPERTIN [Concomitant]
     Active Substance: METOCLOPRAMIDE HYDROCHLORIDE
  7. ASPIRIN CARDIO [Suspect]
     Active Substance: ASPIRIN
     Indication: CEREBRAL ISCHAEMIA
     Dosage: 100 MG, QD
     Route: 048
     Dates: start: 201309, end: 20140423
  8. CYMBALTA [Suspect]
     Active Substance: DULOXETINE HYDROCHLORIDE
     Dosage: 60 MG, QD
     Route: 048

REACTIONS (4)
  - Oesophageal ulcer haemorrhage [Unknown]
  - Melaena [Unknown]
  - Haemorrhagic anaemia [Unknown]
  - Gastrooesophageal reflux disease [Unknown]

NARRATIVE: CASE EVENT DATE: 20140419
